FAERS Safety Report 10635506 (Version 1)
Quarter: 2014Q4

REPORT INFORMATION
  Report Type: Spontaneous
  Country: US (occurrence: US)
  Receive Date: 20141205
  Receipt Date: 20141205
  Transmission Date: 20150529
  Serious: Yes (Hospitalization)
  Sender: FDA-Public Use
  Company Number: US-PERRIGO-14US011750

PATIENT
  Age: 33 Year
  Sex: Male

DRUGS (2)
  1. LOPERAMIDE HYDROCHLORIDE 2 MG 960 [Suspect]
     Active Substance: LOPERAMIDE HYDROCHLORIDE
     Indication: PRODUCT USED FOR UNKNOWN INDICATION
     Dosage: 70 MG, QD FOR MONTHS
     Route: 048
  2. LOPERAMIDE HYDROCHLORIDE 2 MG 960 [Suspect]
     Active Substance: LOPERAMIDE HYDROCHLORIDE
     Dosage: 140 MG, OVER 7 HOURS
     Route: 048

REACTIONS (7)
  - Drug abuse [Recovered/Resolved]
  - Panic reaction [Recovered/Resolved]
  - Chest discomfort [Recovered/Resolved]
  - Electrocardiogram QRS complex prolonged [Recovered/Resolved]
  - Drug level above therapeutic [Recovered/Resolved]
  - Electrocardiogram QT prolonged [Recovered/Resolved]
  - Anxiety [Recovered/Resolved]
